FAERS Safety Report 25825518 (Version 1)
Quarter: 2025Q3

REPORT INFORMATION
  Report Type: Spontaneous
  Country: US (occurrence: None)
  Receive Date: 20250919
  Receipt Date: 20250919
  Transmission Date: 20251021
  Serious: Yes (Hospitalization, Other)
  Sender: FDA-CTU
  Company Number: None

PATIENT
  Age: 58 Year
  Sex: Female
  Weight: 63 kg

DRUGS (1)
  1. SODIUM CITRATE [Suspect]
     Active Substance: SODIUM CITRATE
     Indication: End stage renal disease
     Route: 041
     Dates: start: 20250916, end: 20250916

REACTIONS (11)
  - Dialysis [None]
  - Infusion related reaction [None]
  - Malaise [None]
  - Dizziness [None]
  - Hypotension [None]
  - Erythema [None]
  - Swelling face [None]
  - Periorbital swelling [None]
  - Vision blurred [None]
  - Blood pressure systolic decreased [None]
  - Therapy cessation [None]

NARRATIVE: CASE EVENT DATE: 20250916
